FAERS Safety Report 7640590-9 (Version None)
Quarter: 2011Q3

REPORT INFORMATION
  Report Type: 
  Country: None (occurrence: None)
  Receive Date: 20110728
  Receipt Date: 20110721
  Transmission Date: 20111222
  Serious: No
  Sender: FDA-Public Use
  Company Number: US-BIOGENIDEC-2011BI027294

PATIENT
  Sex: Female

DRUGS (3)
  1. PREDNISONE [Concomitant]
     Indication: MULTIPLE ALLERGIES
     Dates: start: 20110501
  2. AVONEX [Suspect]
     Indication: MULTIPLE SCLEROSIS
     Route: 030
     Dates: start: 20090824
  3. PREDNISONE [Concomitant]
     Indication: ASTHMA
     Dates: start: 20110501

REACTIONS (3)
  - VARICOSE VEIN [None]
  - WEIGHT INCREASED [None]
  - OEDEMA PERIPHERAL [None]
